FAERS Safety Report 18395296 (Version 1)
Quarter: 2020Q4

REPORT INFORMATION
  Report Type: Spontaneous
  Country: FR (occurrence: FR)
  Receive Date: 20201017
  Receipt Date: 20201017
  Transmission Date: 20210114
  Serious: Yes (Hospitalization)
  Sender: FDA-Public Use
  Company Number: FR-ROCHE-2697387

PATIENT
  Age: 15 Year
  Sex: Male

DRUGS (6)
  1. VALIUM [Suspect]
     Active Substance: DIAZEPAM
     Indication: ENCEPHALOPATHY
     Route: 048
     Dates: start: 20200930, end: 20201001
  2. SABRIL [Suspect]
     Active Substance: VIGABATRIN
     Indication: ENCEPHALOPATHY
     Dosage: 500 MG, GRANULES FOR ORAL SOLUTION IN SACHET-DOSE
     Route: 048
     Dates: start: 20200930, end: 20201001
  3. LIORESAL [Suspect]
     Active Substance: BACLOFEN
     Indication: ENCEPHALOPATHY
     Dosage: 10 MG, SCORED TABLET
     Route: 048
     Dates: start: 20200930, end: 20201001
  4. DEPAKINE [Suspect]
     Active Substance: VALPROATE SODIUM
     Indication: ENCEPHALOPATHY
     Dosage: STRENGTH: 200 MG / ML
     Route: 048
     Dates: start: 20200930, end: 20201001
  5. ARTANE [Suspect]
     Active Substance: TRIHEXYPHENIDYL HYDROCHLORIDE
     Indication: EXTRAPYRAMIDAL DISORDER
     Route: 048
     Dates: start: 20200930, end: 20201001
  6. RIVOTRIL [Suspect]
     Active Substance: CLONAZEPAM
     Indication: ENCEPHALOPATHY
     Dosage: STRENGTH: 2.5 MG / ML
     Route: 048
     Dates: start: 20200930, end: 20201001

REACTIONS (1)
  - Apnoea [Recovered/Resolved]

NARRATIVE: CASE EVENT DATE: 20201001
